FAERS Safety Report 8519195-3 (Version None)
Quarter: 2012Q3

REPORT INFORMATION
  Report Type: 
  Country: None (occurrence: None)
  Receive Date: 20120709
  Receipt Date: 20120625
  Transmission Date: 20120928
  Serious: Yes (Death)
  Sender: FDA-Public Use
  Company Number: JPI-P-022230

PATIENT
  Age: 46 Year
  Sex: Male

DRUGS (6)
  1. XYREM [Suspect]
     Indication: SLEEP DISORDER
     Dosage: (UNKNOWN) ORAL, 9 GM (4.5 GM, 2 IN 1 D), ORAL
     Route: 048
     Dates: start: 20090601
  2. XYREM [Suspect]
     Indication: SLEEP DISORDER
     Dosage: (UNKNOWN) ORAL, 9 GM (4.5 GM, 2 IN 1 D), ORAL
     Route: 048
     Dates: start: 20051215, end: 20080512
  3. TRAZODONE HYDROCHLORIDE [Concomitant]
  4. ESZOPICLONE [Concomitant]
  5. TIAGABINE HCL [Concomitant]
  6. 5-HYDROXYTRYPTOPHAN [Concomitant]

REACTIONS (1)
  - MULTIPLE INJURIES [None]
